FAERS Safety Report 5227292-3 (Version None)
Quarter: 2007Q1

REPORT INFORMATION
  Report Type: 
  Country: None (occurrence: None)
  Receive Date: 20070130
  Receipt Date: 20070117
  Transmission Date: 20070707
  Serious: Yes (Hospitalization)
  Sender: FDA-Public Use
  Company Number: FABR-11811

PATIENT
  Age: 52 Year
  Sex: Female
  Weight: 61 kg

DRUGS (17)
  1. FABRAZYME [Suspect]
     Indication: FABRY'S DISEASE
     Dosage: 70 MG Q2WKS IV
     Route: 042
     Dates: start: 20030620, end: 20061201
  2. FABRAZYME [Suspect]
     Indication: FABRY'S DISEASE
     Dosage: 60 MG Q2WKS IV
     Route: 042
     Dates: start: 20070113
  3. TACROLIMUS [Concomitant]
  4. VALGANCICLOVIR HCL [Concomitant]
  5. NPH INSULIN [Concomitant]
  6. SEPTRA [Concomitant]
  7. GABAPENTIN [Concomitant]
  8. LISPRO [Concomitant]
  9. LORATADINE [Concomitant]
  10. PREDNISONE [Concomitant]
  11. FLUCONAZOLE [Concomitant]
  12. DIGOXIN [Concomitant]
  13. PROCRIT [Concomitant]
  14. LANSOPRAZOLE [Concomitant]
  15. LASIX [Concomitant]
  16. METOPROLOL TARTRATE [Concomitant]
  17. MYFORTIC [Concomitant]

REACTIONS (9)
  - CHEST PAIN [None]
  - DILATATION VENTRICULAR [None]
  - DISEASE RECURRENCE [None]
  - DYSPNOEA [None]
  - INFUSION RELATED REACTION [None]
  - PULMONARY ARTERIAL PRESSURE INCREASED [None]
  - RENAL FAILURE [None]
  - RENAL TRANSPLANT [None]
  - WEIGHT DECREASED [None]
